FAERS Safety Report 4362530-0 (Version None)
Quarter: 2004Q2

REPORT INFORMATION
  Report Type: 
  Country: None (occurrence: None)
  Receive Date: 20040521
  Receipt Date: 20040511
  Transmission Date: 20050107
  Serious: Yes (Hospitalization)
  Sender: FDA-Public Use
  Company Number: FR-AMGEN-UK076097

PATIENT
  Age: 73 Year
  Sex: Female

DRUGS (7)
  1. KINERET [Suspect]
     Indication: RHEUMATOID ARTHRITIS
     Route: 058
  2. METHOTREXATE [Suspect]
     Route: 030
  3. SPECIAFOLDINE [Concomitant]
  4. DI-ANTALVIC [Concomitant]
  5. DILTIAZEM [Concomitant]
  6. NIMESULIDE [Concomitant]
  7. ASPIRIN/DIPYRIDAMOLE [Concomitant]

REACTIONS (2)
  - DRUG INEFFECTIVE [None]
  - PULMONARY TUBERCULOSIS [None]
